FAERS Safety Report 9837427 (Version 1)
Quarter: 2014Q1

REPORT INFORMATION
  Report Type: Spontaneous
  Country: US (occurrence: US)
  Receive Date: 20140123
  Receipt Date: 20140123
  Transmission Date: 20141002
  Serious: Yes (Hospitalization)
  Sender: FDA-Public Use
  Company Number: US-UPSHER-SMITH LABORATORIES, INC.-14000122

PATIENT
  Sex: Male

DRUGS (1)
  1. KLOR-CON M [Suspect]
     Indication: BLOOD POTASSIUM DECREASED
     Dosage: 40 MEQ, TID
     Route: 048
     Dates: start: 2009, end: 201309

REACTIONS (2)
  - Blood potassium decreased [Recovered/Resolved]
  - Dehydration [Recovered/Resolved]
